FAERS Safety Report 4561368-9 (Version None)
Quarter: 2005Q1

REPORT INFORMATION
  Report Type: 
  Country: None (occurrence: None)
  Receive Date: 20050126
  Receipt Date: 20040909
  Transmission Date: 20050727
  Serious: Yes (Disabling)
  Sender: FDA-Public Use
  Company Number: US-ROCHE-380242

PATIENT
  Sex: Female

DRUGS (2)
  1. PEGASYS [Suspect]
     Indication: HEPATITIS C
     Route: 065
     Dates: start: 20030315, end: 20030815
  2. VIRAMIDINE [Suspect]
     Indication: HEPATITIS C
     Route: 065
     Dates: start: 20030315, end: 20030815

REACTIONS (5)
  - AMNESIA [None]
  - BRAIN DAMAGE [None]
  - DEPRESSION [None]
  - DISTURBANCE IN ATTENTION [None]
  - MIGRAINE [None]
